FAERS Safety Report 25722354 (Version 1)
Quarter: 2025Q3

REPORT INFORMATION
  Report Type: Spontaneous
  Country: US (occurrence: US)
  Receive Date: 20250825
  Receipt Date: 20250825
  Transmission Date: 20251021
  Serious: Yes (Hospitalization)
  Sender: MYLAN
  Company Number: US-MYLANLABS-2025M1070949

PATIENT
  Age: 59 Year
  Sex: Male

DRUGS (40)
  1. ETOPOSIDE [Suspect]
     Active Substance: ETOPOSIDE
     Indication: Chronic lymphocytic leukaemia
  2. ETOPOSIDE [Suspect]
     Active Substance: ETOPOSIDE
     Route: 065
  3. ETOPOSIDE [Suspect]
     Active Substance: ETOPOSIDE
     Route: 065
  4. ETOPOSIDE [Suspect]
     Active Substance: ETOPOSIDE
  5. DOXORUBICIN [Suspect]
     Active Substance: DOXORUBICIN
     Indication: Chronic lymphocytic leukaemia
  6. DOXORUBICIN [Suspect]
     Active Substance: DOXORUBICIN
     Route: 065
  7. DOXORUBICIN [Suspect]
     Active Substance: DOXORUBICIN
     Route: 065
  8. DOXORUBICIN [Suspect]
     Active Substance: DOXORUBICIN
  9. AMPHOTERICIN B [Suspect]
     Active Substance: AMPHOTERICIN B
     Indication: Scopulariopsis infection
  10. AMPHOTERICIN B [Suspect]
     Active Substance: AMPHOTERICIN B
     Route: 065
  11. AMPHOTERICIN B [Suspect]
     Active Substance: AMPHOTERICIN B
     Route: 065
  12. AMPHOTERICIN B [Suspect]
     Active Substance: AMPHOTERICIN B
  13. TERBINAFINE [Suspect]
     Active Substance: TERBINAFINE
     Indication: Scopulariopsis infection
  14. TERBINAFINE [Suspect]
     Active Substance: TERBINAFINE
     Route: 065
  15. TERBINAFINE [Suspect]
     Active Substance: TERBINAFINE
     Route: 065
  16. TERBINAFINE [Suspect]
     Active Substance: TERBINAFINE
  17. RITUXIMAB [Suspect]
     Active Substance: RITUXIMAB
     Indication: Chronic lymphocytic leukaemia
  18. RITUXIMAB [Suspect]
     Active Substance: RITUXIMAB
     Route: 065
  19. RITUXIMAB [Suspect]
     Active Substance: RITUXIMAB
     Route: 065
  20. RITUXIMAB [Suspect]
     Active Substance: RITUXIMAB
  21. VINCRISTINE [Suspect]
     Active Substance: VINCRISTINE
     Indication: Chronic lymphocytic leukaemia
  22. VINCRISTINE [Suspect]
     Active Substance: VINCRISTINE
     Route: 065
  23. VINCRISTINE [Suspect]
     Active Substance: VINCRISTINE
     Route: 065
  24. VINCRISTINE [Suspect]
     Active Substance: VINCRISTINE
  25. CYCLOPHOSPHAMIDE [Suspect]
     Active Substance: CYCLOPHOSPHAMIDE
     Indication: Chronic lymphocytic leukaemia
  26. CYCLOPHOSPHAMIDE [Suspect]
     Active Substance: CYCLOPHOSPHAMIDE
     Route: 065
  27. CYCLOPHOSPHAMIDE [Suspect]
     Active Substance: CYCLOPHOSPHAMIDE
     Route: 065
  28. CYCLOPHOSPHAMIDE [Suspect]
     Active Substance: CYCLOPHOSPHAMIDE
  29. IDELALISIB [Suspect]
     Active Substance: IDELALISIB
     Indication: Chronic lymphocytic leukaemia
  30. IDELALISIB [Suspect]
     Active Substance: IDELALISIB
     Route: 065
  31. IDELALISIB [Suspect]
     Active Substance: IDELALISIB
     Route: 065
  32. IDELALISIB [Suspect]
     Active Substance: IDELALISIB
  33. CASPOFUNGIN [Suspect]
     Active Substance: CASPOFUNGIN
     Indication: Aspergillus infection
  34. CASPOFUNGIN [Suspect]
     Active Substance: CASPOFUNGIN
     Route: 065
  35. CASPOFUNGIN [Suspect]
     Active Substance: CASPOFUNGIN
     Route: 065
  36. CASPOFUNGIN [Suspect]
     Active Substance: CASPOFUNGIN
  37. POSACONAZOLE [Concomitant]
     Active Substance: POSACONAZOLE
     Indication: Aspergillus infection
  38. POSACONAZOLE [Concomitant]
     Active Substance: POSACONAZOLE
     Route: 065
  39. POSACONAZOLE [Concomitant]
     Active Substance: POSACONAZOLE
     Route: 065
  40. POSACONAZOLE [Concomitant]
     Active Substance: POSACONAZOLE

REACTIONS (6)
  - Aspergillus infection [Recovered/Resolved]
  - Scopulariopsis infection [Unknown]
  - Febrile neutropenia [Unknown]
  - Pneumonia [Unknown]
  - Drug ineffective [Unknown]
  - Disease progression [Unknown]
